FAERS Safety Report 21132519 (Version 3)
Quarter: 2022Q4

REPORT INFORMATION
  Report Type: Spontaneous
  Country: US (occurrence: US)
  Receive Date: 20220726
  Receipt Date: 20221209
  Transmission Date: 20230112
  Serious: No
  Sender: FDA-Public Use
  Company Number: US-BRISTOL-MYERS SQUIBB COMPANY-2022-080232

PATIENT
  Age: 62 Year
  Sex: Female
  Weight: 57.15 kg

DRUGS (3)
  1. POMALYST [Suspect]
     Active Substance: POMALIDOMIDE
     Indication: Plasma cell myeloma
     Dosage: FREQUENCY-  1-21D OF 28D ?CYCLE
     Route: 048
  2. POMALYST [Suspect]
     Active Substance: POMALIDOMIDE
     Route: 065
  3. POMALYST [Suspect]
     Active Substance: POMALIDOMIDE
     Dosage: FREQ: 21D Q 28D CYCLE
     Route: 048
     Dates: start: 20220101

REACTIONS (3)
  - Headache [Unknown]
  - Pharyngitis [Unknown]
  - Insomnia [Unknown]
